FAERS Safety Report 8047334-X (Version None)
Quarter: 2012Q1

REPORT INFORMATION
  Report Type: 
  Country: None (occurrence: None)
  Receive Date: 20120116
  Receipt Date: 20120111
  Transmission Date: 20120608
  Serious: No
  Sender: FDA-Public Use
  Company Number: US-TEVA-317216USA

PATIENT
  Sex: Female
  Weight: 49.486 kg

DRUGS (4)
  1. MICRONOR [Concomitant]
     Indication: CONTRACEPTION
     Route: 048
     Dates: start: 20120108
  2. MUCINEX DM [Concomitant]
     Indication: NASOPHARYNGITIS
  3. PLAN B ONE-STEP [Suspect]
     Indication: POST COITAL CONTRACEPTION
     Dosage: 1.5 MILLIGRAM;
     Route: 048
     Dates: start: 20120109, end: 20120109
  4. BUSPAR [Concomitant]
     Indication: ANXIETY

REACTIONS (2)
  - MENSTRUATION IRREGULAR [None]
  - ABDOMINAL PAIN [None]
